FAERS Safety Report 25277782 (Version 1)
Quarter: 2025Q2

REPORT INFORMATION
  Report Type: Spontaneous
  Country: US (occurrence: None)
  Receive Date: 20250506
  Receipt Date: 20250506
  Transmission Date: 20250717
  Serious: No
  Sender: FDA-CTU
  Company Number: None

PATIENT
  Sex: Male

DRUGS (4)
  1. OPSUMIT [Suspect]
     Active Substance: MACITENTAN
     Indication: Pulmonary arterial hypertension
     Dosage: FREQUENCY : DAILY;?
     Route: 048
     Dates: start: 20170101
  2. OPSUMIT [Concomitant]
     Active Substance: MACITENTAN
  3. SODIUM CHLOR SDV (50ML/FTV) [Concomitant]
  4. EPOPROSTENOL  SDV G-VELETRI [Concomitant]

REACTIONS (1)
  - Complication associated with device [None]
